FAERS Safety Report 5671788-7 (Version None)
Quarter: 2008Q1

REPORT INFORMATION
  Report Type: 
  Country: None (occurrence: None)
  Receive Date: 20080314
  Receipt Date: 20080303
  Transmission Date: 20080703
  Serious: Yes (Hospitalization, Other)
  Sender: FDA-Public Use
  Company Number: 231419J07USA

PATIENT
  Age: 65 Year
  Sex: Female
  Weight: 77.1115 kg

DRUGS (7)
  1. REBIF [Suspect]
     Indication: MULTIPLE SCLEROSIS
     Dosage: 44 MCG, 3 IN 1 WEEKS, SUBCUTANEOUS
     Route: 058
     Dates: start: 20040913, end: 20070125
  2. ZESTRIL [Concomitant]
  3. WELLBUTRIN [Concomitant]
  4. CRESTOR [Concomitant]
  5. REQUIP (ROPINIROLE HYDROCHLORDIE) [Concomitant]
  6. DIAZEPAM [Concomitant]
  7. BACLOFEN [Concomitant]

REACTIONS (4)
  - MUSCLE SPASTICITY [None]
  - RECTAL CANCER STAGE III [None]
  - RESTLESS LEGS SYNDROME [None]
  - VOMITING [None]
